FAERS Safety Report 6982143-1 (Version None)
Quarter: 2010Q3

REPORT INFORMATION
  Report Type: 
  Country: None (occurrence: None)
  Receive Date: 20100914
  Receipt Date: 20100731
  Transmission Date: 20110219
  Serious: No
  Sender: FDA-Public Use
  Company Number: US-PFIZER INC-2005158962

PATIENT
  Sex: Male
  Weight: 174.63 kg

DRUGS (10)
  1. LYRICA [Interacting]
     Indication: PAIN
     Dosage: 75 MG, 1X/DAY
     Route: 048
     Dates: start: 20051107
  2. LYRICA [Interacting]
     Indication: TRIGEMINAL NEURALGIA
     Dosage: 50 MG
     Route: 048
     Dates: start: 20100730, end: 20100731
  3. PERCOCET [Interacting]
     Indication: PAIN
     Route: 048
  4. DILAUDID [Suspect]
     Indication: TRIGEMINAL NEURALGIA
     Dosage: 4 MG, UNK
     Route: 048
  5. NAPROSYN [Suspect]
     Indication: ARTHROPATHY
     Dosage: UNK MG, UNK
     Route: 048
  6. TIAZAC [Concomitant]
     Indication: HYPERTENSION
     Dosage: 180 MG, 1X/DAY
     Route: 048
  7. SERZONE [Concomitant]
     Route: 048
  8. ATIVAN [Concomitant]
     Route: 048
  9. PERI-COLACE [Concomitant]
     Route: 048
  10. LORAZEPAM [Concomitant]
     Indication: ANXIETY
     Dosage: 0.5 MG, 2X/DAY

REACTIONS (28)
  - ABDOMINAL DISCOMFORT [None]
  - ADVERSE EVENT [None]
  - AGITATION [None]
  - ANXIETY [None]
  - BALANCE DISORDER [None]
  - BLOOD PRESSURE INCREASED [None]
  - DIZZINESS [None]
  - DRUG INEFFECTIVE [None]
  - DRUG INTERACTION [None]
  - DRY MOUTH [None]
  - DYSPNOEA [None]
  - EYE DISORDER [None]
  - FATIGUE [None]
  - GAIT DISTURBANCE [None]
  - HUNGER [None]
  - HYPERHIDROSIS [None]
  - INFLUENZA LIKE ILLNESS [None]
  - LETHARGY [None]
  - MALAISE [None]
  - MENTAL STATUS CHANGES [None]
  - MUSCULAR WEAKNESS [None]
  - NAUSEA [None]
  - NEUROPATHY PERIPHERAL [None]
  - PAIN [None]
  - PALPITATIONS [None]
  - SOMNOLENCE [None]
  - SWELLING [None]
  - VENTRICULAR EXTRASYSTOLES [None]
